FAERS Safety Report 15542446 (Version 2)
Quarter: 2019Q2

REPORT INFORMATION
  Report Type: Spontaneous
  Country: US (occurrence: US)
  Receive Date: 20181023
  Receipt Date: 20190625
  Transmission Date: 20190711
  Serious: No
  Sender: FDA-Public Use
  Company Number: US-PFIZER INC-2018426273

PATIENT
  Age: 75 Year
  Sex: Female

DRUGS (6)
  1. IBRANCE [Suspect]
     Active Substance: PALBOCICLIB
     Indication: BREAST CANCER FEMALE
     Dosage: 100 MG, 1X/DAY
     Dates: start: 20180721, end: 201807
  2. EZETIMIBE. [Concomitant]
     Active Substance: EZETIMIBE
     Dosage: 10 MG, UNK
  3. IBRANCE [Suspect]
     Active Substance: PALBOCICLIB
     Dosage: 125 MG, 1X/DAY
     Dates: start: 20180729, end: 20181207
  4. AMLODIPINE BESYLATE. [Concomitant]
     Active Substance: AMLODIPINE BESYLATE
     Dosage: 2.5 MG, UNK
  5. LETROZOLE. [Concomitant]
     Active Substance: LETROZOLE
     Dosage: 2.5 MG, UNK
     Dates: start: 201807
  6. IRBESARTAN HCTZ [Concomitant]
     Active Substance: HYDROCHLOROTHIAZIDE\IRBESARTAN
     Dosage: UNK (300-12.5)

REACTIONS (13)
  - Fatigue [Recovered/Resolved]
  - Epistaxis [Recovered/Resolved]
  - Abdominal pain [Recovered/Resolved]
  - Red blood cell count decreased [Unknown]
  - Gingival pain [Recovered/Resolved]
  - Skin exfoliation [Recovered/Resolved]
  - White blood cell count decreased [Unknown]
  - Malaise [Recovered/Resolved]
  - Rash generalised [Unknown]
  - Alopecia [Unknown]
  - Nasopharyngitis [Recovered/Resolved]
  - Platelet count decreased [Unknown]
  - Dry skin [Recovered/Resolved]

NARRATIVE: CASE EVENT DATE: 2018
